FAERS Safety Report 22398756 (Version 1)
Quarter: 2023Q2

REPORT INFORMATION
  Report Type: Spontaneous
  Country: US (occurrence: US)
  Receive Date: 20230602
  Receipt Date: 20230602
  Transmission Date: 20230721
  Serious: Yes (Hospitalization)
  Sender: FDA-Public Use
  Company Number: US-MYLANLABS-2023M1056270

PATIENT
  Age: 67 Year
  Sex: Male

DRUGS (2)
  1. ATORVASTATIN [Interacting]
     Active Substance: ATORVASTATIN
     Indication: Hyperlipidaemia
     Dosage: UNK
     Route: 065
  2. EZETIMIBE [Interacting]
     Active Substance: EZETIMIBE
     Indication: Hyperlipidaemia
     Dosage: UNK
     Route: 065

REACTIONS (2)
  - Autoimmune hepatitis [Recovering/Resolving]
  - Drug interaction [Recovering/Resolving]
